FAERS Safety Report 7656393-5 (Version None)
Quarter: 2011Q3

REPORT INFORMATION
  Report Type: 
  Country: None (occurrence: None)
  Receive Date: 20110804
  Receipt Date: 20110729
  Transmission Date: 20111222
  Serious: Yes (Other)
  Sender: FDA-Public Use
  Company Number: US-GLAXOSMITHKLINE-A0939125A

PATIENT
  Age: 73 Year
  Sex: Female

DRUGS (21)
  1. SYNTHROID [Concomitant]
  2. CALCIUM + D [Concomitant]
  3. UNSPECIFIED MEDICATION [Concomitant]
  4. ZADITOR [Concomitant]
  5. XALATAN [Concomitant]
  6. COQ10 [Concomitant]
  7. ZANTAC [Concomitant]
  8. DIGOXIN [Concomitant]
  9. GAS-X [Concomitant]
  10. MUCINEX [Concomitant]
  11. LOVASTATIN [Concomitant]
  12. VITAMIN B6 [Concomitant]
  13. BENADRYL [Concomitant]
  14. COUMADIN [Concomitant]
  15. PATANOL [Concomitant]
  16. RYTHMOL SR [Suspect]
     Indication: ATRIAL FIBRILLATION
     Dosage: 225MG TWICE PER DAY
     Route: 048
     Dates: start: 20090614
  17. FLONASE [Concomitant]
  18. GLUCOSAMINE [Concomitant]
  19. BILBERRY [Concomitant]
  20. CITRUCEL [Concomitant]
  21. FISH OIL [Concomitant]

REACTIONS (5)
  - ATRIAL FIBRILLATION [None]
  - NAUSEA [None]
  - DIZZINESS [None]
  - PRODUCT QUALITY ISSUE [None]
  - VOMITING [None]
